FAERS Safety Report 17459489 (Version 1)
Quarter: 2020Q1

REPORT INFORMATION
  Report Type: Spontaneous
  Country: FR (occurrence: FR)
  Receive Date: 20200226
  Receipt Date: 20200226
  Transmission Date: 20200409
  Serious: Yes (Other)
  Sender: FDA-Public Use
  Company Number: FR-MYLANLABS-2020M1020288

PATIENT
  Age: 34 Year
  Sex: Male

DRUGS (3)
  1. TRANDOLAPRIL. [Suspect]
     Active Substance: TRANDOLAPRIL
     Indication: GLOMERULONEPHRITIS
     Dosage: 2 MILLIGRAM, QD
     Route: 048
     Dates: start: 20191219
  2. WELLVONE [Suspect]
     Active Substance: ATOVAQUONE
     Indication: PNEUMOCYSTIS JIROVECII PNEUMONIA
     Dosage: 10 MILLILITER, QD
     Route: 048
     Dates: start: 201910
  3. LEUKINE [Suspect]
     Active Substance: SARGRAMOSTIM
     Indication: PRODUCT USED FOR UNKNOWN INDICATION
     Dosage: 1 A?ROSOL MATIN ET SOIR UNE SEMAINE SUR DEUX
     Route: 055
     Dates: start: 20191025

REACTIONS (2)
  - Hypertransaminasaemia [Not Recovered/Not Resolved]
  - Hepatocellular injury [Not Recovered/Not Resolved]

NARRATIVE: CASE EVENT DATE: 20200206
